FAERS Safety Report 12201865 (Version 1)
Quarter: 2016Q1

REPORT INFORMATION
  Report Type: Spontaneous
  Country: US (occurrence: US)
  Receive Date: 20160322
  Receipt Date: 20160322
  Transmission Date: 20160526
  Serious: Yes (Life-Threatening, Other)
  Sender: FDA-Public Use
  Company Number: US-SA-2016SA056941

PATIENT
  Sex: Female

DRUGS (28)
  1. ALBUTEROL. [Concomitant]
     Active Substance: ALBUTEROL
  2. POTASSIUM CHLORIDE. [Concomitant]
     Active Substance: POTASSIUM CHLORIDE
  3. LORAZEPAM. [Suspect]
     Active Substance: LORAZEPAM
     Indication: DELIRIUM
     Dosage: RECEIVING 4-6 DOSES EVERY 24 HR
     Route: 065
  4. BECLOMETHASONE [Concomitant]
     Active Substance: BECLOMETHASONE
     Dosage: INHALATION
  5. GENTAMICIN. [Concomitant]
     Active Substance: GENTAMICIN
  6. ALDACTONE [Concomitant]
     Active Substance: SPIRONOLACTONE
  7. CALCIUM CHLORIDE. [Concomitant]
     Active Substance: CALCIUM CHLORIDE
  8. NITROPRUSSIDE [Concomitant]
     Active Substance: NITROPRUSSIDE
     Route: 042
  9. NYSTATIN. [Concomitant]
     Active Substance: NYSTATIN
  10. CHLOROTHIAZIDE. [Concomitant]
     Active Substance: CHLOROTHIAZIDE
  11. MILRINONE [Concomitant]
     Active Substance: MILRINONE
     Route: 042
  12. SODIUM CHLORIDE. [Concomitant]
     Active Substance: SODIUM CHLORIDE
  13. FUROSEMIDE. [Suspect]
     Active Substance: FUROSEMIDE
     Route: 042
  14. MEROPENEM. [Concomitant]
     Active Substance: MEROPENEM
  15. HEPARIN [Concomitant]
     Active Substance: HEPARIN SODIUM
     Route: 042
  16. HYDROCORTISONE. [Suspect]
     Active Substance: HYDROCORTISONE
     Route: 042
  17. LIDOCAINE HYDROCHLORIDE. [Suspect]
     Active Substance: LIDOCAINE HYDROCHLORIDE
     Dosage: EVERY MINUTE
     Route: 042
  18. MORPHINE SALT NOT SPECIFIED / UNKNOWN / UNKNOWN [Suspect]
     Active Substance: MORPHINE
     Indication: DELIRIUM
     Dosage: RECEIVING 3-6 DOSES EVERY 24HR
     Route: 065
  19. ALBUTEROL. [Concomitant]
     Active Substance: ALBUTEROL
     Dosage: INHALATION
  20. TOBRAMYCIN. [Concomitant]
     Active Substance: TOBRAMYCIN
  21. SILDENAFIL. [Concomitant]
     Active Substance: SILDENAFIL
  22. ALBUMIN [Concomitant]
     Active Substance: ALBUMIN (HUMAN)
  23. VECURONIUM [Concomitant]
     Active Substance: VECURONIUM BROMIDE
  24. METHADONE HYDROCHLORIDE. [Suspect]
     Active Substance: METHADONE HYDROCHLORIDE
     Indication: DELIRIUM
     Route: 065
  25. METHADONE HYDROCHLORIDE. [Suspect]
     Active Substance: METHADONE HYDROCHLORIDE
     Indication: DELIRIUM
     Dosage: DOSE INCREASED
     Route: 065
  26. POTASSIUM CHLORIDE. [Concomitant]
     Active Substance: POTASSIUM CHLORIDE
  27. ACETAMINOPHEN. [Concomitant]
     Active Substance: ACETAMINOPHEN
  28. CALCIUM [Concomitant]
     Active Substance: CALCIUM

REACTIONS (4)
  - Product use issue [Unknown]
  - Delirium [Recovered/Resolved]
  - Electrocardiogram QT prolonged [Recovered/Resolved]
  - Condition aggravated [Recovered/Resolved]
